FAERS Safety Report 10504895 (Version 1)
Quarter: 2014Q3

REPORT INFORMATION
  Report Type: Spontaneous
  Country: US (occurrence: None)
  Receive Date: 20140929
  Receipt Date: 20140929
  Transmission Date: 20150326
  Serious: Yes (Hospitalization)
  Sender: FDA-Public Use
  Company Number: US-2014-11305

PATIENT
  Age: 51 Year
  Sex: Male
  Weight: 81.5 kg

DRUGS (6)
  1. PROLIXIN /00000602/ (FLUPHENAZINE HYDROCHLORIDE) [Concomitant]
  2. LITHIUM [Concomitant]
     Active Substance: LITHIUM CARBONATE
  3. COGENTIN (BENZATROPINE MESILATE) [Concomitant]
  4. ABILIFY [Suspect]
     Active Substance: ARIPIPRAZOLE
     Indication: SCHIZOPHRENIA
     Route: 030
     Dates: start: 20140411
  5. ABILIFY [Suspect]
     Active Substance: ARIPIPRAZOLE
     Indication: SCHIZOAFFECTIVE DISORDER
     Route: 030
     Dates: start: 20140411
  6. ZYPREXA [Concomitant]
     Active Substance: OLANZAPINE

REACTIONS (2)
  - Off label use [None]
  - Psychiatric decompensation [None]

NARRATIVE: CASE EVENT DATE: 20140607
